FAERS Safety Report 6744947-X (Version None)
Quarter: 2010Q2

REPORT INFORMATION
  Report Type: 
  Country: None (occurrence: None)
  Receive Date: 20100527
  Receipt Date: 20100518
  Transmission Date: 20101027
  Serious: Yes (Other)
  Sender: FDA-Public Use
  Company Number: FR-ABBOTT-10P-056-0642980-00

PATIENT
  Sex: Male

DRUGS (5)
  1. HUMIRA [Suspect]
     Indication: CROHN'S DISEASE
     Route: 058
     Dates: start: 20090228
  2. HUMIRA [Suspect]
     Indication: ARTHRALGIA
  3. HUMIRA [Suspect]
     Indication: MUSCULOSKELETAL PAIN
  4. HUMIRA [Suspect]
     Indication: PSORIASIS
  5. DAFALGAN [Concomitant]
     Indication: DRUG USE FOR UNKNOWN INDICATION

REACTIONS (1)
  - ALOPECIA [None]
